FAERS Safety Report 17091569 (Version 1)
Quarter: 2019Q4

REPORT INFORMATION
  Report Type: Report from Study
  Country: DE (occurrence: DE)
  Receive Date: 20191129
  Receipt Date: 20191129
  Transmission Date: 20200122
  Serious: Yes (Life-Threatening, Hospitalization)
  Sender: FDA-Public Use
  Company Number: DE-ROCHE-2477060

PATIENT
  Age: 76 Year
  Sex: Male
  Weight: 99 kg

DRUGS (68)
  1. RITUXIMAB. [Suspect]
     Active Substance: RITUXIMAB
     Dosage: 798.75 MG, UNK
     Route: 041
     Dates: start: 20181122, end: 20181122
  2. PREDNISONE. [Suspect]
     Active Substance: PREDNISONE
     Route: 048
     Dates: start: 20190220, end: 20190224
  3. PREDNISONE. [Suspect]
     Active Substance: PREDNISONE
     Route: 048
     Dates: start: 20181218, end: 20181222
  4. VINCRISTINE [Suspect]
     Active Substance: VINCRISTINE
     Route: 041
     Dates: start: 20190220, end: 20190220
  5. DOXORUBICIN [Suspect]
     Active Substance: DOXORUBICIN
     Indication: DIFFUSE LARGE B-CELL LYMPHOMA
     Dosage: 106 MG, UNK
     Route: 041
     Dates: start: 20190220, end: 20190220
  6. DOXORUBICIN [Suspect]
     Active Substance: DOXORUBICIN
     Dosage: 105.50 MG, UNK
     Route: 041
     Dates: start: 20181218, end: 20181218
  7. VELMETIA [Concomitant]
     Active Substance: METFORMIN\SITAGLIPTIN
     Indication: TYPE 2 DIABETES MELLITUS
     Dosage: UNK
     Route: 048
     Dates: start: 20181031
  8. DEXAMETHASONE. [Concomitant]
     Active Substance: DEXAMETHASONE
     Dosage: UNK
     Route: 048
     Dates: start: 20190220, end: 20190220
  9. TORASEMIDE [Concomitant]
     Active Substance: TORSEMIDE
     Indication: HYPERTENSION
     Dosage: UNK
     Route: 048
     Dates: start: 20181031
  10. VINCRISTINE [Suspect]
     Active Substance: VINCRISTINE
     Dosage: 1 MG, UNK
     Route: 041
     Dates: start: 20181126, end: 20181126
  11. CYCLOPHOSPHAMIDE. [Suspect]
     Active Substance: CYCLOPHOSPHAMIDE
     Dosage: 1597.50 MG, UNK
     Route: 041
     Dates: start: 20181126, end: 20181126
  12. RANITIDINE. [Concomitant]
     Active Substance: RANITIDINE
     Indication: PROPHYLAXIS
     Dosage: UNK
     Route: 042
     Dates: start: 20181126, end: 20181126
  13. MAGNESIUM CLOFIBRATE [Concomitant]
     Indication: PRODUCT USED FOR UNKNOWN INDICATION
     Dosage: UNK
     Route: 048
     Dates: start: 20181031
  14. TINZAPARIN [Concomitant]
     Active Substance: TINZAPARIN
     Indication: PRODUCT USED FOR UNKNOWN INDICATION
     Dosage: UNK
     Route: 058
     Dates: start: 20181031
  15. PARACETAMOL [Concomitant]
     Active Substance: ACETAMINOPHEN
     Indication: PROPHYLAXIS
     Dosage: UNK
     Route: 048
     Dates: start: 20190128, end: 20190128
  16. DEXAMETHASONE. [Concomitant]
     Active Substance: DEXAMETHASONE
     Indication: PROPHYLAXIS
     Dosage: UNK
     Route: 048
     Dates: start: 20181126, end: 20181126
  17. GRANISETRON [Concomitant]
     Active Substance: GRANISETRON
     Dosage: UNK
     Route: 048
     Dates: start: 20181126, end: 20181126
  18. PREDNISONE. [Suspect]
     Active Substance: PREDNISONE
     Indication: DIFFUSE LARGE B-CELL LYMPHOMA
     Route: 048
     Dates: start: 20190128, end: 20190201
  19. VINCRISTINE [Suspect]
     Active Substance: VINCRISTINE
     Indication: DIFFUSE LARGE B-CELL LYMPHOMA
     Route: 041
     Dates: start: 20181218, end: 20181218
  20. VINCRISTINE [Suspect]
     Active Substance: VINCRISTINE
     Dosage: 1 MG, UNK
     Route: 041
     Dates: start: 20190129, end: 20190129
  21. CYCLOPHOSPHAMIDE. [Suspect]
     Active Substance: CYCLOPHOSPHAMIDE
     Indication: DIFFUSE LARGE B-CELL LYMPHOMA
     Dosage: 1560 MG, UNK
     Route: 041
     Dates: start: 20190314, end: 20190314
  22. DIMETINDENE [Concomitant]
     Active Substance: DIMETHINDENE
     Dosage: UNK
     Route: 042
     Dates: start: 20190403, end: 20190403
  23. LIPEGFILGRASTIM [Concomitant]
     Active Substance: LIPEGFILGRASTIM
     Indication: RED BLOOD CELL COUNT DECREASED
     Dosage: UNK
     Route: 058
     Dates: start: 20190130, end: 20190130
  24. GRANISETRON [Concomitant]
     Active Substance: GRANISETRON
     Indication: PROPHYLAXIS
     Dosage: UNK
     Route: 048
     Dates: start: 20190220, end: 20190220
  25. GRANISETRON [Concomitant]
     Active Substance: GRANISETRON
     Dosage: UNK
     Route: 048
     Dates: start: 20181218, end: 20181218
  26. RITUXIMAB. [Suspect]
     Active Substance: RITUXIMAB
     Indication: DIFFUSE LARGE B-CELL LYMPHOMA
     Route: 041
     Dates: start: 20181217, end: 20181217
  27. PREDNISONE. [Suspect]
     Active Substance: PREDNISONE
     Route: 048
     Dates: start: 20190313, end: 20190317
  28. DOXORUBICIN [Suspect]
     Active Substance: DOXORUBICIN
     Dosage: 106.50 MG, UNK
     Route: 041
     Dates: start: 20181126, end: 20181126
  29. FOLSAEURE [Concomitant]
     Active Substance: FOLIC ACID
     Indication: PRODUCT USED FOR UNKNOWN INDICATION
     Dosage: UNK
     Route: 048
     Dates: start: 20181031
  30. RITUXIMAB. [Suspect]
     Active Substance: RITUXIMAB
     Route: 041
     Dates: start: 20190128, end: 20190128
  31. RITUXIMAB. [Suspect]
     Active Substance: RITUXIMAB
     Dosage: 780 MG, UNK
     Route: 041
     Dates: start: 20190424
  32. VINCRISTINE [Suspect]
     Active Substance: VINCRISTINE
     Dosage: 1 MG, UNK
     Route: 041
     Dates: start: 20190314, end: 20190314
  33. CYCLOPHOSPHAMIDE. [Suspect]
     Active Substance: CYCLOPHOSPHAMIDE
     Dosage: 1582.5 MG, UNK
     Route: 041
     Dates: start: 20190129, end: 20190129
  34. RANITIDINE. [Concomitant]
     Active Substance: RANITIDINE
     Dosage: UNK
     Route: 042
     Dates: start: 20181217, end: 20181218
  35. BISOPROLOL [Concomitant]
     Active Substance: BISOPROLOL
     Indication: PRODUCT USED FOR UNKNOWN INDICATION
     Dosage: UNK
     Route: 048
     Dates: start: 20181031
  36. MESNA. [Concomitant]
     Active Substance: MESNA
     Indication: PROPHYLAXIS
     Dosage: UNK
     Route: 042
     Dates: start: 20181218, end: 20181218
  37. MESNA. [Concomitant]
     Active Substance: MESNA
     Dosage: UNK
     Route: 042
     Dates: start: 20181126, end: 20181126
  38. MESNA. [Concomitant]
     Active Substance: MESNA
     Dosage: UNK
     Route: 042
     Dates: start: 20190128, end: 20190128
  39. MESNA. [Concomitant]
     Active Substance: MESNA
     Dosage: UNK
     Route: 042
     Dates: start: 20190220, end: 20190220
  40. RAMIPRIL. [Concomitant]
     Active Substance: RAMIPRIL
     Indication: HYPERTENSION
     Dosage: UNK
     Route: 048
     Dates: start: 20181031
  41. COTRIMOXAZOLE [Concomitant]
     Active Substance: SULFAMETHOXAZOLE\TRIMETHOPRIM
     Indication: PRODUCT USED FOR UNKNOWN INDICATION
     Dosage: UNK
     Route: 048
     Dates: start: 20181031
  42. LEVOTHYROXINE SODIUM;POTASSIUM IODIDE [Concomitant]
     Indication: HYPERTHYROIDISM
     Dosage: UNK
     Route: 048
     Dates: start: 20181031
  43. RITUXIMAB. [Suspect]
     Active Substance: RITUXIMAB
     Route: 041
     Dates: start: 20190403, end: 20190403
  44. DOXORUBICIN [Suspect]
     Active Substance: DOXORUBICIN
     Dosage: 104 MG, UNK
     Route: 041
     Dates: start: 20190314, end: 20190314
  45. CYCLOPHOSPHAMIDE. [Suspect]
     Active Substance: CYCLOPHOSPHAMIDE
     Dosage: 1582.5 MG, UNK
     Route: 041
     Dates: start: 20181218, end: 20181218
  46. DIMETINDENE [Concomitant]
     Active Substance: DIMETHINDENE
     Dosage: UNK
     Route: 042
     Dates: start: 20190219, end: 20190219
  47. LIPEGFILGRASTIM [Concomitant]
     Active Substance: LIPEGFILGRASTIM
     Indication: PROPHYLAXIS
     Dosage: UNK
     Route: 058
     Dates: start: 20181127, end: 20181127
  48. LIPEGFILGRASTIM [Concomitant]
     Active Substance: LIPEGFILGRASTIM
     Dosage: UNK
     Route: 058
     Dates: start: 20190221, end: 20190221
  49. LIPEGFILGRASTIM [Concomitant]
     Active Substance: LIPEGFILGRASTIM
     Dosage: UNK
     Route: 058
     Dates: start: 20190315, end: 20190315
  50. LIPEGFILGRASTIM [Concomitant]
     Active Substance: LIPEGFILGRASTIM
     Dosage: UNK
     Route: 058
     Dates: start: 20181217, end: 20181217
  51. LIPEGFILGRASTIM [Concomitant]
     Active Substance: LIPEGFILGRASTIM
     Dosage: UNK
     Route: 058
     Dates: start: 20190109, end: 20190109
  52. DEXAMETHASONE. [Concomitant]
     Active Substance: DEXAMETHASONE
     Dosage: UNK
     Route: 048
     Dates: start: 20181218, end: 20181218
  53. GRANISETRON [Concomitant]
     Active Substance: GRANISETRON
     Dosage: UNK
     Route: 048
     Dates: start: 20190128, end: 20190128
  54. DOXORUBICIN [Suspect]
     Active Substance: DOXORUBICIN
     Dosage: 105.50 MG, UNK
     Route: 041
     Dates: start: 20190129, end: 20190129
  55. RANITIDINE. [Concomitant]
     Active Substance: RANITIDINE
     Dosage: UNK
     Route: 042
     Dates: start: 20190128, end: 20190129
  56. LORAZEPAM. [Concomitant]
     Active Substance: LORAZEPAM
     Indication: PRODUCT USED FOR UNKNOWN INDICATION
     Dosage: UNK
     Route: 048
     Dates: start: 20181031
  57. LIPEGFILGRASTIM [Concomitant]
     Active Substance: LIPEGFILGRASTIM
     Dosage: UNK
     Route: 058
     Dates: start: 20181219, end: 20181219
  58. DEXAMETHASONE. [Concomitant]
     Active Substance: DEXAMETHASONE
     Dosage: UNK
     Route: 048
     Dates: start: 20190128, end: 20190128
  59. SIMVASTATIN. [Concomitant]
     Active Substance: SIMVASTATIN
     Indication: HYPERTENSION
     Dosage: UNK
     Route: 048
     Dates: start: 20181031
  60. RITUXIMAB. [Suspect]
     Active Substance: RITUXIMAB
     Route: 041
     Dates: start: 20190313, end: 20190313
  61. RITUXIMAB. [Suspect]
     Active Substance: RITUXIMAB
     Route: 041
     Dates: start: 20190219, end: 20190219
  62. PREDNISONE. [Suspect]
     Active Substance: PREDNISONE
     Route: 048
     Dates: start: 20181126, end: 20181130
  63. CYCLOPHOSPHAMIDE. [Suspect]
     Active Substance: CYCLOPHOSPHAMIDE
     Dosage: 1590 MG, UNK
     Route: 041
     Dates: start: 20190220, end: 20190220
  64. RANITIDINE. [Concomitant]
     Active Substance: RANITIDINE
     Dosage: UNK
     Route: 042
     Dates: start: 20190219, end: 20190220
  65. DIMETINDENE [Concomitant]
     Active Substance: DIMETHINDENE
     Indication: PROPHYLAXIS
     Dosage: UNK
     Route: 042
     Dates: start: 20190128, end: 20190128
  66. MIANSERIN [Concomitant]
     Active Substance: MIANSERIN
     Indication: PRODUCT USED FOR UNKNOWN INDICATION
     Dosage: UNK
     Route: 048
     Dates: start: 20181031
  67. PARACETAMOL [Concomitant]
     Active Substance: ACETAMINOPHEN
     Dosage: UNK
     Route: 065
     Dates: start: 20190403, end: 20190403
  68. ALLOPURINOL. [Concomitant]
     Active Substance: ALLOPURINOL
     Indication: PRODUCT USED FOR UNKNOWN INDICATION
     Dosage: UNK
     Route: 048
     Dates: start: 20181031

REACTIONS (6)
  - Abdominal hernia [Not Recovered/Not Resolved]
  - Depression [Not Recovered/Not Resolved]
  - Diarrhoea [Not Recovered/Not Resolved]
  - Oedema peripheral [Not Recovered/Not Resolved]
  - Neutrophil count increased [Not Recovered/Not Resolved]
  - Dyspnoea [Not Recovered/Not Resolved]

NARRATIVE: CASE EVENT DATE: 20181217
